FAERS Safety Report 9145472 (Version 2)
Quarter: 2016Q1

REPORT INFORMATION
  Report Type: Spontaneous
  Country: US (occurrence: US)
  Receive Date: 20130307
  Receipt Date: 20160325
  Transmission Date: 20160526
  Serious: Yes (Death, Hospitalization, Other)
  Sender: FDA-Public Use
  Company Number: US-PFIZER INC-2013078448

PATIENT
  Age: 89 Year
  Sex: Female
  Weight: 45.35 kg

DRUGS (2)
  1. XALATAN [Suspect]
     Active Substance: LATANOPROST
     Indication: INTRAOCULAR PRESSURE INCREASED
     Dosage: 2 GTT, 1X/DAY (A DROP IN EACH EYE ONCE A DAY)
  2. XALATAN [Suspect]
     Active Substance: LATANOPROST
     Indication: GLAUCOMA
     Dosage: 50 UG/ML, UNK
     Route: 047

REACTIONS (4)
  - Cerebrovascular accident [Recovered/Resolved]
  - Drug ineffective [Unknown]
  - Death [Fatal]
  - Drug hypersensitivity [Unknown]

NARRATIVE: CASE EVENT DATE: 201103
